FAERS Safety Report 25612422 (Version 1)
Quarter: 2025Q3

REPORT INFORMATION
  Report Type: Spontaneous
  Country: US (occurrence: US)
  Receive Date: 20250728
  Receipt Date: 20250728
  Transmission Date: 20251021
  Serious: No
  Sender: APOTEX
  Company Number: US-APOTEX-2025AP009724

PATIENT
  Sex: Male

DRUGS (1)
  1. RISEDRONATE SODIUM [Suspect]
     Active Substance: RISEDRONATE SODIUM
     Indication: Product used for unknown indication
     Route: 065
     Dates: start: 202506, end: 20250628

REACTIONS (1)
  - Temporomandibular pain and dysfunction syndrome [Unknown]

NARRATIVE: CASE EVENT DATE: 20250601
